FAERS Safety Report 7610634-9 (Version None)
Quarter: 2011Q3

REPORT INFORMATION
  Report Type: 
  Country: None (occurrence: None)
  Receive Date: 20110715
  Receipt Date: 20110704
  Transmission Date: 20111222
  Serious: Yes (Hospitalization)
  Sender: FDA-Public Use
  Company Number: JP-BAYER-200812487BYL

PATIENT
  Age: 54 Year
  Sex: Male
  Weight: 58 kg

DRUGS (4)
  1. NEXAVAR [Suspect]
     Indication: RENAL CELL CARCINOMA
     Route: 048
     Dates: start: 20080625, end: 20080705
  2. INTRON A [Concomitant]
     Dosage: 3000 KIU (DAILY DOSE), TIW, SUBCUTANEOUS
     Route: 058
     Dates: start: 20070403, end: 20090405
  3. NEXAVAR [Suspect]
     Dosage: DAILY DOSE 400 MG
     Route: 048
     Dates: start: 20080711, end: 20080926
  4. LOXONIN [Concomitant]
     Dosage: 60 MG (DAILY DOSE), , ORAL
     Route: 048
     Dates: start: 20080403, end: 20080820

REACTIONS (7)
  - BLOOD AMYLASE INCREASED [None]
  - HEPATIC FUNCTION ABNORMAL [None]
  - ALOPECIA [None]
  - DRY MOUTH [None]
  - LYMPHOCYTE COUNT DECREASED [None]
  - RASH [None]
  - PALMAR-PLANTAR ERYTHRODYSAESTHESIA SYNDROME [None]
